FAERS Safety Report 26008814 (Version 1)
Quarter: 2025Q4

REPORT INFORMATION
  Report Type: Report from Study
  Country: CA (occurrence: CA)
  Receive Date: 20251106
  Receipt Date: 20251106
  Transmission Date: 20260117
  Serious: Yes (Hospitalization)
  Sender: ABBVIE
  Company Number: CA-ABBVIE-6533008

PATIENT
  Age: 67 Year
  Sex: Male

DRUGS (1)
  1. SKYRIZI [Suspect]
     Active Substance: RISANKIZUMAB-RZAA
     Indication: Crohn^s disease
     Dosage: LAST DOSE 03 NOV 2025
     Route: 058

REACTIONS (6)
  - Hospitalisation [Unknown]
  - Gastrointestinal examination abnormal [Recovered/Resolved]
  - Abdominal pain [Recovered/Resolved]
  - Stoma creation [Recovering/Resolving]
  - Abdominal pain upper [Unknown]
  - Fistula [Unknown]

NARRATIVE: CASE EVENT DATE: 20250601
